FAERS Safety Report 23832775 (Version 2)
Quarter: 2024Q2

REPORT INFORMATION
  Report Type: Spontaneous
  Country: US (occurrence: US)
  Receive Date: 20240508
  Receipt Date: 20240521
  Transmission Date: 20240716
  Serious: No
  Sender: FDA-Public Use
  Company Number: US-SA-SAC20240430001166

PATIENT
  Age: 32 Year
  Sex: Male

DRUGS (16)
  1. TZIELD [Suspect]
     Active Substance: TEPLIZUMAB-MZWV
     Indication: Diabetes prophylaxis
     Dosage: 126.75 UG, 1X
     Route: 042
     Dates: start: 20240424, end: 20240424
  2. TZIELD [Suspect]
     Active Substance: TEPLIZUMAB-MZWV
     Dosage: 243.75 UG, 1X
     Route: 042
     Dates: start: 20240425, end: 20240425
  3. TZIELD [Suspect]
     Active Substance: TEPLIZUMAB-MZWV
     Dosage: 487.5 UG, 1X
     Route: 042
     Dates: start: 20240426, end: 20240426
  4. TZIELD [Suspect]
     Active Substance: TEPLIZUMAB-MZWV
     Dosage: 975 UG, 1X
     Route: 042
     Dates: start: 20240427, end: 20240427
  5. TZIELD [Suspect]
     Active Substance: TEPLIZUMAB-MZWV
     Dosage: 2008.5 UG, 1X
     Route: 042
     Dates: start: 20240428, end: 20240428
  6. TZIELD [Suspect]
     Active Substance: TEPLIZUMAB-MZWV
     Dosage: 2008.5 UG, 1X
     Route: 042
     Dates: start: 20240429, end: 20240429
  7. TZIELD [Suspect]
     Active Substance: TEPLIZUMAB-MZWV
     Dosage: 2008.5 UG, 1X
     Route: 042
     Dates: start: 20240430, end: 20240430
  8. TZIELD [Suspect]
     Active Substance: TEPLIZUMAB-MZWV
     Dosage: 2008.5 UG, 1X
     Route: 042
     Dates: start: 20240501, end: 20240501
  9. TZIELD [Suspect]
     Active Substance: TEPLIZUMAB-MZWV
     Dosage: 2008.5 UG, 1X
     Route: 042
     Dates: start: 20240502, end: 20240502
  10. TZIELD [Suspect]
     Active Substance: TEPLIZUMAB-MZWV
     Dosage: 2008.5 UG, 1X
     Route: 042
     Dates: start: 20240503, end: 20240503
  11. TZIELD [Suspect]
     Active Substance: TEPLIZUMAB-MZWV
     Dosage: 2008.5 UG, 1X
     Route: 042
     Dates: start: 20240504, end: 20240504
  12. TZIELD [Suspect]
     Active Substance: TEPLIZUMAB-MZWV
     Dosage: 2008.5 UG, 1X
     Route: 042
     Dates: start: 20240505, end: 20240505
  13. ZOFRAN [Concomitant]
     Active Substance: ONDANSETRON HYDROCHLORIDE
     Indication: Premedication
     Dosage: UNK
     Dates: start: 20240424, end: 202404
  14. ZOFRAN [Concomitant]
     Active Substance: ONDANSETRON HYDROCHLORIDE
     Dosage: UNK
     Dates: start: 20240427
  15. IBUPROFEN [Concomitant]
     Active Substance: IBUPROFEN
     Indication: Premedication
     Dosage: UNK
     Dates: start: 20240424
  16. BENADRYL [Concomitant]
     Active Substance: DIPHENHYDRAMINE HYDROCHLORIDE
     Indication: Premedication
     Dosage: UNK
     Dates: start: 20240424

REACTIONS (2)
  - Nausea [Not Recovered/Not Resolved]
  - Vomiting [Unknown]

NARRATIVE: CASE EVENT DATE: 20240427
